FAERS Safety Report 4646542-5 (Version None)
Quarter: 2005Q2

REPORT INFORMATION
  Report Type: 
  Country: None (occurrence: None)
  Receive Date: 20050422
  Receipt Date: 20050412
  Transmission Date: 20051028
  Serious: Yes (Disabling, Other)
  Sender: FDA-Public Use
  Company Number: 2005047427

PATIENT
  Age: 60 Year
  Sex: Female
  Weight: 70.3075 kg

DRUGS (1)
  1. CELEBREX [Suspect]
     Indication: COLONIC POLYP
     Dosage: 1000 MG (200 MG, 5 IN 1 D), ORAL
     Route: 048
     Dates: start: 20030528, end: 20041101

REACTIONS (5)
  - BACK PAIN [None]
  - CARDIAC FAILURE CONGESTIVE [None]
  - DEAFNESS UNILATERAL [None]
  - URTICARIA [None]
  - VIRAL INFECTION [None]
